FAERS Safety Report 4708422-6 (Version None)
Quarter: 2005Q3

REPORT INFORMATION
  Report Type: 
  Country: None (occurrence: None)
  Receive Date: 20050706
  Receipt Date: 20050624
  Transmission Date: 20060218
  Serious: Yes (Hospitalization, Other)
  Sender: FDA-Public Use
  Company Number: KII-2005-0017270

PATIENT
  Age: 43 Year
  Sex: Male

DRUGS (2)
  1. OXYCONTIN [Suspect]
     Dosage: ORAL
     Route: 048
  2. COCAINE (COCAINE) [Suspect]
     Dosage: ORAL
     Route: 048

REACTIONS (9)
  - AGITATION [None]
  - BLOOD CREATINE PHOSPHOKINASE INCREASED [None]
  - DEPRESSED LEVEL OF CONSCIOUSNESS [None]
  - ELECTROCARDIOGRAM CHANGE [None]
  - HYPERHIDROSIS [None]
  - HYPERTENSION [None]
  - POLYSUBSTANCE ABUSE [None]
  - SOMNOLENCE [None]
  - TACHYCARDIA [None]
